FAERS Safety Report 4608472-4 (Version None)
Quarter: 2005Q1

REPORT INFORMATION
  Report Type: 
  Country: None (occurrence: None)
  Receive Date: 20050311
  Receipt Date: 20050311
  Transmission Date: 20050727
  Serious: Yes (Life-Threatening)
  Sender: FDA-Public Use
  Company Number: None

PATIENT
  Sex: Female

DRUGS (1)
  1. DROTRECOGIN [Suspect]
     Indication: SEPSIS
     Dosage: 2856 MCG  HOUR INTRAVENOUS
     Route: 042
     Dates: start: 20040722, end: 20040725

REACTIONS (1)
  - HAEMORRHAGE [None]
